FAERS Safety Report 4467693-4 (Version None)
Quarter: 2004Q4

REPORT INFORMATION
  Report Type: 
  Country: None (occurrence: None)
  Receive Date: 20041001
  Receipt Date: 20040918
  Transmission Date: 20050328
  Serious: Yes (Disabling)
  Sender: FDA-Public Use
  Company Number: 2004052734

PATIENT
  Age: 59 Year
  Sex: Male

DRUGS (5)
  1. LIPITOR [Suspect]
     Indication: HYPERLIPIDAEMIA
     Dosage: (1 IN 1 D) ORAL
     Route: 048
     Dates: start: 20021001, end: 20040525
  2. ACETYLSALICYLIC ACID [Concomitant]
  3. IRBESARTAN [Concomitant]
  4. ROFECOXIB [Concomitant]
  5. METFORMIN HCL [Concomitant]

REACTIONS (6)
  - AMNESIA [None]
  - ANXIETY [None]
  - DEPRESSION [None]
  - MENTAL IMPAIRMENT [None]
  - PARANOIA [None]
  - TREATMENT NONCOMPLIANCE [None]
